FAERS Safety Report 7546144-7 (Version None)
Quarter: 2011Q2

REPORT INFORMATION
  Report Type: 
  Country: None (occurrence: None)
  Receive Date: 20110614
  Receipt Date: 20010322
  Transmission Date: 20111010
  Serious: Yes (Death)
  Sender: FDA-Public Use
  Company Number: PHBS2001CA03067

PATIENT
  Sex: Male

DRUGS (2)
  1. EXELON [Suspect]
     Dosage: 3 MG, BID
     Route: 048
     Dates: start: 20010213, end: 20010306
  2. EXELON [Suspect]
     Route: 048
     Dates: start: 20010110

REACTIONS (1)
  - DEATH [None]
